FAERS Safety Report 10468839 (Version 1)
Quarter: 2014Q3

REPORT INFORMATION
  Report Type: Spontaneous
  Country: US (occurrence: US)
  Receive Date: 20140923
  Receipt Date: 20140923
  Transmission Date: 20150326
  Serious: Yes (Hospitalization)
  Sender: FDA-Public Use
  Company Number: US-AUROBINDO-AUR-APU-2014-09846

PATIENT
  Sex: Female

DRUGS (1)
  1. TRIMETHOPRIM+SULFAMETHOXAZOLE [Suspect]
     Active Substance: SULFAMETHOXAZOLE\TRIMETHOPRIM
     Indication: PRODUCT USED FOR UNKNOWN INDICATION
     Dosage: UNK, TWO TIMES A DAY
     Route: 065
     Dates: start: 20140423, end: 20140430

REACTIONS (5)
  - Gait disturbance [Unknown]
  - Pyrexia [Unknown]
  - Constipation [Unknown]
  - Dyspnoea [Unknown]
  - Blood potassium decreased [Unknown]

NARRATIVE: CASE EVENT DATE: 20140430
